FAERS Safety Report 4539992-9 (Version None)
Quarter: 2004Q4

REPORT INFORMATION
  Report Type: 
  Country: None (occurrence: None)
  Receive Date: 20041228
  Receipt Date: 20041222
  Transmission Date: 20050328
  Serious: Yes (Other)
  Sender: FDA-Public Use
  Company Number: JP-ABBOTT-04P-087-0284427-00

PATIENT
  Age: 57 Year
  Sex: Male

DRUGS (3)
  1. LIPANTIL CAPSULES [Suspect]
     Indication: HYPERLIPIDAEMIA
     Route: 048
     Dates: start: 20040427, end: 20041025
  2. TELMISARTAN [Concomitant]
     Indication: DRUG USE FOR UNKNOWN INDICATION
  3. ALLOPURINOL [Concomitant]
     Indication: DRUG USE FOR UNKNOWN INDICATION

REACTIONS (1)
  - RENAL IMPAIRMENT [None]
